FAERS Safety Report 24153259 (Version 1)
Quarter: 2024Q3

REPORT INFORMATION
  Report Type: Spontaneous
  Country: ES (occurrence: ES)
  Receive Date: 20240730
  Receipt Date: 20240730
  Transmission Date: 20241016
  Serious: Yes (Hospitalization)
  Sender: JOHNSON AND JOHNSON
  Company Number: ES-JNJFOC-20240767597

PATIENT
  Age: 96 Year
  Sex: Female
  Weight: 75.3 kg

DRUGS (14)
  1. STELARA [Suspect]
     Active Substance: USTEKINUMAB
     Indication: Psoriatic arthropathy
     Dosage: DE-INTENSIFIED SINCE 2019 EVERY 4-5 MONTHS
     Route: 058
     Dates: start: 20091005
  2. STELARA [Suspect]
     Active Substance: USTEKINUMAB
     Dosage: DE-INTENSIFIED SINCE 2019 EVERY 4-5 MONTHS
     Route: 058
     Dates: start: 2010, end: 20200811
  3. LEVOTHYROXINE SODIUM [Concomitant]
     Active Substance: LEVOTHYROXINE SODIUM
  4. ALOGLIPTIN [Concomitant]
     Active Substance: ALOGLIPTIN
  5. INSULINA [INSULIN NOS] [Concomitant]
  6. ALLOPURINOL [Concomitant]
     Active Substance: ALLOPURINOL
  7. QUETIAPINE [Concomitant]
     Active Substance: QUETIAPINE
     Indication: Insomnia
  8. ATROVENT [Concomitant]
     Active Substance: IPRATROPIUM BROMIDE
     Dosage: 2 INCHES FOR 8 HOURS
  9. HYDROCHLOROTHIAZIDE [Concomitant]
     Active Substance: HYDROCHLOROTHIAZIDE
     Dates: end: 201701
  10. FUROSEMIDE [Concomitant]
     Active Substance: FUROSEMIDE
     Dates: end: 20211010
  11. CYANOCOBALAMIN [Concomitant]
     Active Substance: CYANOCOBALAMIN
  12. DUPHALAC [Concomitant]
     Active Substance: LACTULOSE
  13. MENTHOL AND METHYL SALICYLATE [Concomitant]
     Active Substance: MENTHOL\METHYL SALICYLATE
  14. MOMETASONE FUROATE [Concomitant]
     Active Substance: MOMETASONE FUROATE
     Dosage: CREMA

REACTIONS (3)
  - Bile duct stone [Unknown]
  - Aspiration [Unknown]
  - Cholangitis [Unknown]

NARRATIVE: CASE EVENT DATE: 20180301
